FAERS Safety Report 5756379-1 (Version None)
Quarter: 2008Q2

REPORT INFORMATION
  Report Type: 
  Country: None (occurrence: None)
  Receive Date: 20080529
  Receipt Date: 20071101
  Transmission Date: 20081010
  Serious: Yes (Other)
  Sender: FDA-Public Use
  Company Number: 2007S1010898

PATIENT
  Age: 63 Year
  Sex: Male

DRUGS (4)
  1. METFORMIN HCL [Suspect]
     Dosage: TWICE A DAY
  2. ASPIRIN [Concomitant]
  3. GLYBURIDE [Concomitant]
  4. ALLOPURINOL [Concomitant]

REACTIONS (6)
  - ABDOMINAL PAIN UPPER [None]
  - CHOLANGITIS [None]
  - HEPATITIS [None]
  - NAUSEA [None]
  - PYREXIA [None]
  - VOMITING [None]
